FAERS Safety Report 6250166-6 (Version None)
Quarter: 2009Q2

REPORT INFORMATION
  Report Type: 
  Country: None (occurrence: None)
  Receive Date: 20090626
  Receipt Date: 20090615
  Transmission Date: 20091009
  Serious: No
  Sender: FDA-Public Use
  Company Number: DSU-2009-01230

PATIENT
  Age: 59 Year
  Sex: Female
  Weight: 64.8644 kg

DRUGS (1)
  1. WELCHOL [Suspect]
     Indication: HYPERLIPIDAEMIA
     Dosage: 3750 MG (3750 MG, QD), PER ORAL
     Route: 048
     Dates: start: 20040101, end: 20090603

REACTIONS (7)
  - BLOOD TRIGLYCERIDES INCREASED [None]
  - DRUG INEFFECTIVE [None]
  - PRODUCT COATING ISSUE [None]
  - PRODUCT COLOUR ISSUE [None]
  - PYREXIA [None]
  - TABLET ISSUE [None]
  - VOMITING [None]
